FAERS Safety Report 21239719 (Version 1)
Quarter: 2022Q3

REPORT INFORMATION
  Report Type: Spontaneous
  Country: BR (occurrence: BR)
  Receive Date: 20220822
  Receipt Date: 20220822
  Transmission Date: 20221027
  Serious: Yes (Other)
  Sender: FDA-Public Use
  Company Number: BR-BAYER-2022A117164

PATIENT
  Age: 40 Year
  Sex: Female

DRUGS (1)
  1. XARELTO [Suspect]
     Active Substance: RIVAROXABAN
     Indication: Product used for unknown indication
     Route: 048
     Dates: start: 20220805, end: 2022

REACTIONS (1)
  - Necrosis [Recovering/Resolving]

NARRATIVE: CASE EVENT DATE: 20220805
